FAERS Safety Report 18915092 (Version 1)
Quarter: 2021Q1

REPORT INFORMATION
  Report Type: Spontaneous
  Country: DE (occurrence: DE)
  Receive Date: 20210218
  Receipt Date: 20210218
  Transmission Date: 20210420
  Serious: Yes (Other)
  Sender: FDA-Public Use
  Company Number: DE-JNJFOC-20201031963

PATIENT
  Age: 71 Year
  Sex: Female
  Weight: 73 kg

DRUGS (5)
  1. XARELTO [Suspect]
     Active Substance: RIVAROXABAN
     Dosage: 15 MG, HS
     Route: 048
     Dates: start: 20210122
  2. VITAMIN B12 [Concomitant]
     Active Substance: CYANOCOBALAMIN
     Indication: MUSCLE SPASMS
  3. ABTEI MAGNESIUM [Concomitant]
     Indication: MUSCLE SPASMS
  4. XARELTO [Suspect]
     Active Substance: RIVAROXABAN
     Indication: ATRIAL FIBRILLATION
     Dosage: 20 MG, HS
     Route: 048
     Dates: start: 201001, end: 20210121
  5. DIGIMERCK MINOR [Concomitant]
     Active Substance: DIGITOXIN
     Dosage: 0.07 MG

REACTIONS (17)
  - Haematemesis [Unknown]
  - Syncope [Unknown]
  - Disturbance in attention [Unknown]
  - Discomfort [Unknown]
  - Feeling abnormal [Unknown]
  - Haemoptysis [Recovered/Resolved]
  - Haemorrhage [Recovered/Resolved]
  - Dyspnoea [Unknown]
  - Haematemesis [Unknown]
  - Peripheral swelling [Unknown]
  - Headache [Unknown]
  - Chest pain [Unknown]
  - Pain in extremity [Unknown]
  - Atrial fibrillation [Unknown]
  - Headache [Unknown]
  - Pain [Unknown]
  - Erythema [Unknown]

NARRATIVE: CASE EVENT DATE: 2017
